FAERS Safety Report 8979202 (Version 1)
Quarter: 2012Q4

REPORT INFORMATION
  Report Type: Report from Study
  Country: CA (occurrence: CA)
  Receive Date: 20121221
  Receipt Date: 20121221
  Transmission Date: 20130627
  Serious: Yes (Hospitalization)
  Sender: FDA-Public Use
  Company Number: CA-ABBOTT-12P-028-1023000-00

PATIENT
  Age: 85 Year
  Sex: Male

DRUGS (7)
  1. LEUPROLIDE ACETATE DEPOT [Suspect]
     Indication: PROSTATE CANCER
     Route: 030
     Dates: start: 2012
  2. ZYPREXA [Concomitant]
     Indication: PRODUCT USED FOR UNKNOWN INDICATION
     Dosage: At bedtime
     Route: 048
  3. EFFEXOR XR [Concomitant]
     Indication: PRODUCT USED FOR UNKNOWN INDICATION
     Route: 048
  4. LORAZEPAM [Concomitant]
     Indication: PRODUCT USED FOR UNKNOWN INDICATION
     Dosage: At bedtime and as required
     Route: 048
  5. DIOVAN [Concomitant]
     Indication: PRODUCT USED FOR UNKNOWN INDICATION
     Route: 048
  6. NORVASC (AMLODIPINE) [Concomitant]
     Indication: PRODUCT USED FOR UNKNOWN INDICATION
     Route: 048
  7. CRESTOR [Concomitant]
     Indication: PRODUCT USED FOR UNKNOWN INDICATION
     Route: 048

REACTIONS (3)
  - Delirium [Recovered/Resolved]
  - Delusion [Recovered/Resolved]
  - Paranoia [Recovered/Resolved]
